FAERS Safety Report 6528464-8 (Version None)
Quarter: 2010Q1

REPORT INFORMATION
  Report Type: 
  Country: None (occurrence: None)
  Receive Date: 20100106
  Receipt Date: 20100104
  Transmission Date: 20100710
  Serious: Yes (Hospitalization)
  Sender: FDA-Public Use
  Company Number: B0623503A

PATIENT
  Sex: Female

DRUGS (1)
  1. AUGMENTIN '125' [Suspect]
     Indication: BACTERIAL INFECTION
     Dosage: 2G PER DAY
     Route: 048
     Dates: start: 20090114, end: 20090116

REACTIONS (1)
  - PRESYNCOPE [None]
